FAERS Safety Report 5739488-2 (Version None)
Quarter: 2008Q2

REPORT INFORMATION
  Report Type: 
  Country: None (occurrence: None)
  Receive Date: 20080515
  Receipt Date: 20080507
  Transmission Date: 20081010
  Serious: Yes (Other)
  Sender: FDA-Public Use
  Company Number: PHHY2008AU07280

PATIENT
  Age: 46 Year
  Sex: Male

DRUGS (11)
  1. FUNGILIN [Suspect]
     Dosage: 40MG, ONE TIME
     Route: 042
     Dates: start: 19980707
  2. FUNGILIN [Suspect]
     Dosage: 80MG, DAILY
     Route: 042
     Dates: start: 19980708, end: 19980709
  3. PRIMAXIN [Suspect]
     Dosage: 2GM DAILY
     Route: 042
     Dates: start: 19980702, end: 19980708
  4. VANCOMYCIN HYDROCHLORIDE [Suspect]
     Indication: PYREXIA
     Dosage: 2GM DAILY
     Route: 042
     Dates: start: 19980702, end: 19980707
  5. VESANOID [Suspect]
     Indication: ACUTE MYELOID LEUKAEMIA
     Dosage: 80MG DAILY
     Route: 048
     Dates: start: 19980618, end: 19980709
  6. MENOPREM [Concomitant]
     Route: 042
     Dates: start: 19980708, end: 19980723
  7. RULIDE [Concomitant]
     Indication: PNEUMONIA
     Dosage: 300MG DAILY
     Route: 048
     Dates: start: 19980707, end: 19980712
  8. FAMVIR [Suspect]
     Indication: HERPES ZOSTER
     Dosage: 250MG, DAILY
     Route: 048
     Dates: start: 19980704, end: 19980708
  9. AMPHOTERICIN B [Suspect]
     Dosage: 40 MG, UNK
     Route: 042
     Dates: start: 19980707, end: 19980709
  10. IMIPENEM [Suspect]
     Indication: PYREXIA
     Dosage: 2 G, UNK
     Dates: start: 19980702, end: 19980708
  11. TRETINOIN [Suspect]
     Dosage: 80 MG, UNK

REACTIONS (2)
  - RASH [None]
  - RENAL IMPAIRMENT [None]
